FAERS Safety Report 7668236-4 (Version None)
Quarter: 2011Q3

REPORT INFORMATION
  Report Type: 
  Country: None (occurrence: None)
  Receive Date: 20110808
  Receipt Date: 20110727
  Transmission Date: 20111222
  Serious: Yes (Hospitalization)
  Sender: FDA-Public Use
  Company Number: US-JNJFOC-20110706854

PATIENT
  Sex: Male
  Weight: 35.3 kg

DRUGS (5)
  1. PREDNISONE [Concomitant]
  2. REMICADE [Suspect]
     Indication: CROHN'S DISEASE
     Route: 042
     Dates: end: 20090709
  3. REMICADE [Suspect]
     Route: 042
     Dates: start: 20070112
  4. METHOTREXATE [Concomitant]
  5. HUMIRA [Concomitant]
     Dates: start: 20090730

REACTIONS (1)
  - UPPER RESPIRATORY TRACT INFECTION [None]
